FAERS Safety Report 21211383 (Version 2)
Quarter: 2022Q4

REPORT INFORMATION
  Report Type: Spontaneous
  Country: US (occurrence: US)
  Receive Date: 20220815
  Receipt Date: 20221019
  Transmission Date: 20230113
  Serious: Yes (Other)
  Sender: FDA-Public Use
  Company Number: US-JNJFOC-20220820174

PATIENT
  Age: 64 Year
  Sex: Female

DRUGS (10)
  1. ELMIRON [Suspect]
     Active Substance: PENTOSAN POLYSULFATE SODIUM
     Indication: Cystitis interstitial
     Route: 048
     Dates: start: 1996, end: 2000
  2. ELMIRON [Suspect]
     Active Substance: PENTOSAN POLYSULFATE SODIUM
     Route: 048
     Dates: start: 200006, end: 200410
  3. ELMIRON [Suspect]
     Active Substance: PENTOSAN POLYSULFATE SODIUM
     Route: 048
     Dates: start: 200412, end: 201112
  4. AMITRIPTYLINE [Concomitant]
     Active Substance: AMITRIPTYLINE
     Indication: Cystitis interstitial
     Dates: start: 1988
  5. AMBIEN [Concomitant]
     Active Substance: ZOLPIDEM TARTRATE
     Indication: Sleep disorder
     Dates: start: 1998
  6. ATORVASTATIN [Concomitant]
     Active Substance: ATORVASTATIN
     Indication: Blood cholesterol
     Dates: start: 2012
  7. CIPROFLOXACIN [Concomitant]
     Active Substance: CIPROFLOXACIN
     Indication: Cystitis
     Dates: start: 2010, end: 2022
  8. IBUPROFEN [Concomitant]
     Active Substance: IBUPROFEN
     Indication: Back pain
     Dates: start: 2005
  9. ACETAMINOPHEN\HYDROCODONE [Concomitant]
     Active Substance: ACETAMINOPHEN\HYDROCODONE
     Indication: Back pain
     Dates: start: 2007
  10. HYOPHEN [BENZOIC ACID;HYOSCYAMINE SULFATE;METHENAMINE;METHYLTHIONINIUM [Concomitant]
     Indication: Bladder pain
     Dates: start: 2016

REACTIONS (1)
  - Maculopathy [Unknown]

NARRATIVE: CASE EVENT DATE: 20200201
